FAERS Safety Report 23615216 (Version 2)
Quarter: 2024Q2

REPORT INFORMATION
  Report Type: Spontaneous
  Country: US (occurrence: US)
  Receive Date: 20240311
  Receipt Date: 20240419
  Transmission Date: 20240716
  Serious: Yes (Other)
  Sender: FDA-Public Use
  Company Number: US-ELI_LILLY_AND_COMPANY-US202403005298

PATIENT
  Age: 67 Year
  Sex: Female

DRUGS (2)
  1. FORTEO [Suspect]
     Active Substance: TERIPARATIDE
     Indication: Osteoporosis
     Dosage: 20 UG, UNKNOWN
     Route: 058
     Dates: start: 20240207
  2. FORTEO [Suspect]
     Active Substance: TERIPARATIDE
     Dosage: 250 UG, UNKNOWN
     Route: 058
     Dates: start: 20240207

REACTIONS (13)
  - Vein rupture [Unknown]
  - Injection site erythema [Recovered/Resolved]
  - Joint stiffness [Recovered/Resolved]
  - Arthropathy [Recovered/Resolved]
  - Dysstasia [Recovered/Resolved]
  - Joint stiffness [Recovered/Resolved]
  - Arthropathy [Recovered/Resolved]
  - Sleep disorder due to a general medical condition [Unknown]
  - Limb discomfort [Unknown]
  - Pain in extremity [Unknown]
  - Arthralgia [Recovered/Resolved]
  - Arthralgia [Recovered/Resolved]
  - Muscle spasms [Recovered/Resolved]

NARRATIVE: CASE EVENT DATE: 20240407
